FAERS Safety Report 5788021-8 (Version None)
Quarter: 2008Q2

REPORT INFORMATION
  Report Type: 
  Country: None (occurrence: None)
  Receive Date: 20080625
  Receipt Date: 20080620
  Transmission Date: 20081010
  Serious: Yes (Other)
  Sender: FDA-Public Use
  Company Number: US-ELI_LILLY_AND_COMPANY-US200805002892

PATIENT
  Age: 48 Year
  Sex: Female
  Weight: 64.853 kg

DRUGS (11)
  1. CYMBALTA [Suspect]
     Indication: DEPRESSION
     Dosage: 60 MG, UNK
     Dates: start: 20050901, end: 20060929
  2. NEURONTIN [Concomitant]
     Dosage: 300 MG, DAILY (1/D)
  3. AMBIEN [Concomitant]
     Dosage: 10 MG, UNK
  4. KEPPRA [Concomitant]
     Dosage: 200 MG, 2/D
  5. PERCOCET [Concomitant]
  6. AMITRIPTYLINE HYDROCHLORIDE [Concomitant]
     Dosage: 50 MG, UNK
  7. DOXYCYCLIN /00055701/ [Concomitant]
     Dosage: 40 MG, UNK
  8. PREVACID [Concomitant]
  9. ALLEGRA [Concomitant]
  10. OXYCONTIN [Concomitant]
     Dosage: 80 MG, 3/D
  11. TRAZODONE HCL [Concomitant]
     Dosage: 50 MG, 2/D

REACTIONS (2)
  - ALANINE AMINOTRANSFERASE INCREASED [None]
  - ASPARTATE AMINOTRANSFERASE INCREASED [None]
